FAERS Safety Report 20010834 (Version 3)
Quarter: 2022Q1

REPORT INFORMATION
  Report Type: Report from Study
  Country: FR (occurrence: FR)
  Receive Date: 20211028
  Receipt Date: 20220215
  Transmission Date: 20220423
  Serious: Yes (Hospitalization)
  Sender: FDA-Public Use
  Company Number: FR-TAKEDA-FR201820237

PATIENT
  Age: 34 Year
  Sex: Female
  Weight: 58.957 kg

DRUGS (26)
  1. TEDUGLUTIDE [Suspect]
     Active Substance: TEDUGLUTIDE
     Indication: Short-bowel syndrome
     Dosage: 2.8 MG, 1X/DAY:QD
     Route: 065
     Dates: start: 20160705, end: 20160902
  2. TEDUGLUTIDE [Suspect]
     Active Substance: TEDUGLUTIDE
     Indication: Short-bowel syndrome
     Dosage: 2.8 MG, 1X/DAY:QD
     Route: 065
     Dates: start: 20160705, end: 20160902
  3. TEDUGLUTIDE [Suspect]
     Active Substance: TEDUGLUTIDE
     Indication: Short-bowel syndrome
     Dosage: 2.8 MG, 1X/DAY:QD
     Route: 065
     Dates: start: 20160705, end: 20160902
  4. TEDUGLUTIDE [Suspect]
     Active Substance: TEDUGLUTIDE
     Indication: Short-bowel syndrome
     Dosage: 2.8 MG, 1X/DAY:QD
     Route: 065
     Dates: start: 20160705, end: 20160902
  5. TEDUGLUTIDE [Suspect]
     Active Substance: TEDUGLUTIDE
     Dosage: 2.8 MG, 1X/DAY:QD
     Route: 065
     Dates: start: 20160705, end: 20200429
  6. TEDUGLUTIDE [Suspect]
     Active Substance: TEDUGLUTIDE
     Dosage: 2.8 MG, 1X/DAY:QD
     Route: 065
     Dates: start: 20160705, end: 20200429
  7. TEDUGLUTIDE [Suspect]
     Active Substance: TEDUGLUTIDE
     Dosage: 2.8 MG, 1X/DAY:QD
     Route: 065
     Dates: start: 20160705, end: 20200429
  8. TEDUGLUTIDE [Suspect]
     Active Substance: TEDUGLUTIDE
     Dosage: 2.8 MG, 1X/DAY:QD
     Route: 065
     Dates: start: 20160705, end: 20200429
  9. FOSFOMYCIN TROMETHAMINE [Concomitant]
     Active Substance: FOSFOMYCIN TROMETHAMINE
     Indication: Urinary tract infection
  10. PHLOROGLUCINOL [Concomitant]
     Active Substance: PHLOROGLUCINOL
     Indication: Muscle spasms
  11. TRIMEBUTINE MALEATE [Concomitant]
     Active Substance: TRIMEBUTINE MALEATE
     Indication: Abdominal pain upper
  12. IMODIUM [Concomitant]
     Active Substance: LOPERAMIDE HYDROCHLORIDE
     Indication: Prophylaxis
  13. MAGNESIUM [Concomitant]
     Active Substance: MAGNESIUM
     Indication: Polyarthritis
     Dosage: 1 INTERNATIONAL UNIT, BID
     Route: 048
     Dates: start: 20210610
  14. MAGNESIUM [Concomitant]
     Active Substance: MAGNESIUM
     Indication: Hypomagnesaemia
     Dosage: 1 DOSAGE FORM, BID
     Route: 048
     Dates: start: 20210610
  15. MAGNESIUM [Concomitant]
     Active Substance: MAGNESIUM
     Indication: Chondrocalcinosis
  16. Clamoxyl [Concomitant]
     Indication: Influenza like illness
     Dosage: 1 GRAM, TID
     Route: 048
     Dates: start: 20200924, end: 20200930
  17. Clamoxyl [Concomitant]
     Indication: Lung disorder
  18. MAGNESIUM SULFATE [Concomitant]
     Active Substance: MAGNESIUM SULFATE
     Indication: Polyarthritis
     Dosage: 5 DOSAGE FORM, 2/WEEK
     Route: 042
     Dates: start: 20210722
  19. MAGNESIUM SULFATE [Concomitant]
     Active Substance: MAGNESIUM SULFATE
     Indication: Chondrocalcinosis
     Dosage: 5 DOSAGE FORM, 1/WEEK
     Route: 042
     Dates: start: 20210610, end: 20210721
  20. MAGNESIUM SULFATE [Concomitant]
     Active Substance: MAGNESIUM SULFATE
     Indication: Hypomagnesaemia
  21. VITAMINS [Concomitant]
     Active Substance: VITAMINS
     Indication: Chondrocalcinosis
     Dosage: 1 DOSAGE FORM, 2/WEEK
     Route: 042
     Dates: start: 20210722
  22. VITAMINS [Concomitant]
     Active Substance: VITAMINS
     Indication: Hypomagnesaemia
     Dosage: 1 DOSAGE FORM, 1/WEEK
     Route: 042
     Dates: start: 20210610, end: 20210721
  23. VITAMINS [Concomitant]
     Active Substance: VITAMINS
     Indication: Polyarthritis
  24. UNSPECIFIED INGREDIENT [Concomitant]
     Active Substance: UNSPECIFIED INGREDIENT
     Indication: Chondrocalcinosis
     Dosage: 1 DOSAGE FORM, 2/WEEK
     Route: 042
     Dates: start: 20210722
  25. UNSPECIFIED INGREDIENT [Concomitant]
     Active Substance: UNSPECIFIED INGREDIENT
     Indication: Hypomagnesaemia
     Dosage: 1 DOSAGE FORM, 1/WEEK
     Route: 042
     Dates: start: 20210610, end: 20210721
  26. UNSPECIFIED INGREDIENT [Concomitant]
     Active Substance: UNSPECIFIED INGREDIENT
     Indication: Polyarthritis

REACTIONS (1)
  - Diarrhoea [Recovered/Resolved]

NARRATIVE: CASE EVENT DATE: 20200102
